FAERS Safety Report 10191877 (Version 1)
Quarter: 2014Q2

REPORT INFORMATION
  Report Type: Spontaneous
  Country: US (occurrence: US)
  Receive Date: 20140523
  Receipt Date: 20140523
  Transmission Date: 20141212
  Serious: Yes (Hospitalization)
  Sender: FDA-Public Use
  Company Number: US-GLAXOSMITHKLINE-A1073684A

PATIENT
  Age: 77 Year
  Sex: Female

DRUGS (8)
  1. ADVAIR [Suspect]
     Indication: ASTHMA
     Dosage: 1PUFF TWICE PER DAY
     Route: 055
     Dates: start: 2006
  2. FLOVENT [Suspect]
     Indication: ASTHMA
     Dosage: 1PUFF TWICE PER DAY
     Route: 055
     Dates: start: 2013, end: 2013
  3. ALBUTEROL INHALER [Concomitant]
  4. DILTIAZEM [Concomitant]
  5. ATACAND [Concomitant]
  6. ATENOLOL [Concomitant]
  7. VITAMINS [Concomitant]
  8. SUPPLEMENT [Concomitant]

REACTIONS (12)
  - Heart rate irregular [Not Recovered/Not Resolved]
  - Palpitations [Not Recovered/Not Resolved]
  - Dysphonia [Not Recovered/Not Resolved]
  - Oropharyngeal pain [Not Recovered/Not Resolved]
  - Aphonia [Not Recovered/Not Resolved]
  - Cough [Unknown]
  - Chronic obstructive pulmonary disease [Unknown]
  - Respiratory distress [Unknown]
  - Drug ineffective [Unknown]
  - Inhalation therapy [Unknown]
  - Dyspnoea [Unknown]
  - Nasopharyngitis [Unknown]
